FAERS Safety Report 21787215 (Version 7)
Quarter: 2024Q2

REPORT INFORMATION
  Report Type: Report from Study
  Country: US (occurrence: US)
  Receive Date: 20221228
  Receipt Date: 20240618
  Transmission Date: 20240716
  Serious: Yes (Hospitalization, Other)
  Sender: FDA-Public Use
  Company Number: US-UCBSA-2022071831

PATIENT
  Age: 14 Year
  Sex: Male

DRUGS (8)
  1. FINTEPLA [Suspect]
     Active Substance: FENFLURAMINE
     Indication: Lennox-Gastaut syndrome
     Dosage: 6 MILLILITER, 2X/DAY (BID)
     Route: 048
     Dates: start: 20221117
  2. FINTEPLA [Suspect]
     Active Substance: FENFLURAMINE
     Dosage: 5 MILLILITER, 2X/DAY (BID)
     Route: 048
  3. FINTEPLA [Suspect]
     Active Substance: FENFLURAMINE
     Dosage: 4.5 MILLILITER, 2X/DAY (BID)
     Route: 048
  4. FINTEPLA [Suspect]
     Active Substance: FENFLURAMINE
     Dosage: 4.5 MILLILITER IN MORNING AND 5 MILLILITER IN EVENING
     Route: 048
  5. FINTEPLA [Suspect]
     Active Substance: FENFLURAMINE
     Dosage: 5 MILLILITER, 2X/DAY (BID)
     Route: 048
  6. FINTEPLA [Suspect]
     Active Substance: FENFLURAMINE
     Dosage: 2.5ML QAM, 2.5 ML IN THE AFTERNOON, AND 4.5 ML QPM
     Route: 048
  7. FINTEPLA [Suspect]
     Active Substance: FENFLURAMINE
     Dosage: 2.5 ML IN AM, 2.5 ML IN MIDDAY, 4.5 ML IN PM
     Route: 048
  8. FINTEPLA [Suspect]
     Active Substance: FENFLURAMINE
     Dosage: 2.5 ML QAM, 2.5 ML IN THE AFTERNOON, 4.5 ML QPM
     Route: 048

REACTIONS (6)
  - Neuroprosthesis implantation [Recovered/Resolved]
  - Seizure [Recovered/Resolved]
  - Hyperhidrosis [Not Recovered/Not Resolved]
  - Feeling hot [Recovered/Resolved]
  - Sinusitis [Not Recovered/Not Resolved]
  - Off label use [Unknown]

NARRATIVE: CASE EVENT DATE: 20221216
